FAERS Safety Report 6405275-5 (Version None)
Quarter: 2009Q4

REPORT INFORMATION
  Report Type: 
  Country: None (occurrence: None)
  Receive Date: 20091016
  Receipt Date: 20091016
  Transmission Date: 20100525
  Serious: Yes (Other)
  Sender: FDA-Public Use
  Company Number: None

PATIENT
  Age: 66 Year
  Sex: Female
  Weight: 64.4108 kg

DRUGS (2)
  1. DURADYL SR TAB BREC [Suspect]
     Indication: VASOMOTOR RHINITIS
     Dosage: 1 TWICE DAY
     Dates: start: 20080101
  2. DURADYL SR TAB BREC [Suspect]
     Indication: VASOMOTOR RHINITIS
     Dosage: 1 TWICE DAY
     Dates: start: 20090101

REACTIONS (3)
  - NEUROPATHY PERIPHERAL [None]
  - RESTLESSNESS [None]
  - URINARY TRACT INFECTION [None]
